FAERS Safety Report 6974235-8 (Version None)
Quarter: 2010Q3

REPORT INFORMATION
  Report Type: 
  Country: None (occurrence: None)
  Receive Date: 20100909
  Receipt Date: 20100906
  Transmission Date: 20110219
  Serious: Yes (Life-Threatening, Hospitalization, Disabling, Other)
  Sender: FDA-Public Use
  Company Number: CO-ABBOTT-10P-036-0668399-00

PATIENT
  Sex: Male

DRUGS (1)
  1. KALETRA [Suspect]
     Indication: HIV INFECTION
     Dosage: 200/50 MG DAILY
     Route: 048
     Dates: start: 20081204

REACTIONS (2)
  - BURKITT'S LYMPHOMA [None]
  - HISTOPLASMOSIS [None]
